FAERS Safety Report 10476785 (Version 1)
Quarter: 2014Q3

REPORT INFORMATION
  Report Type: Spontaneous
  Country: US (occurrence: US)
  Receive Date: 20140925
  Receipt Date: 20140925
  Transmission Date: 20150326
  Serious: No
  Sender: FDA-Public Use
  Company Number: US-009507513-1409USA012645

PATIENT
  Age: 16 Year
  Sex: Female
  Weight: 89.4 kg

DRUGS (2)
  1. NEXPLANON [Suspect]
     Active Substance: ETONOGESTREL
     Indication: CONTRACEPTION
     Dosage: 1 ROD/ EVERY THREE YEARS
     Route: 059
     Dates: start: 20140922
  2. PROVENTIL [Concomitant]
     Active Substance: ALBUTEROL
     Dosage: UNK, ON OCCASION

REACTIONS (2)
  - Tonsillar hypertrophy [Unknown]
  - Pharyngitis streptococcal [Unknown]

NARRATIVE: CASE EVENT DATE: 20140922
